FAERS Safety Report 5188313-X (Version None)
Quarter: 2006Q4

REPORT INFORMATION
  Report Type: 
  Country: None (occurrence: None)
  Receive Date: 20061221
  Receipt Date: 20061214
  Transmission Date: 20070319
  Serious: Yes (Hospitalization)
  Sender: FDA-Public Use
  Company Number: US-ROCHE-475279

PATIENT

DRUGS (1)
  1. PEGASYS [Suspect]
     Indication: DRUG USE FOR UNKNOWN INDICATION
     Dosage: ROUTE: INJECTION.
     Route: 050

REACTIONS (3)
  - DRUG ABUSER [None]
  - RENAL FAILURE [None]
  - RHABDOMYOLYSIS [None]
